FAERS Safety Report 10429977 (Version 3)
Quarter: 2014Q4

REPORT INFORMATION
  Report Type: Report from Study
  Country: US (occurrence: US)
  Receive Date: 20140904
  Receipt Date: 20141013
  Transmission Date: 20150528
  Serious: Yes (Hospitalization)
  Sender: FDA-Public Use
  Company Number: US-SA-2014SA118799

PATIENT
  Age: 75 Year
  Sex: Male
  Weight: 108.4 kg

DRUGS (1)
  1. LANTUS [Suspect]
     Active Substance: INSULIN GLARGINE
     Indication: TYPE 2 DIABETES MELLITUS
     Dosage: DOSE:30 UNIT(S)
     Route: 065
     Dates: start: 1999

REACTIONS (3)
  - Drug administration error [Unknown]
  - Dyspnoea [Unknown]
  - Cardiac failure congestive [Unknown]
